FAERS Safety Report 24387334 (Version 4)
Quarter: 2024Q4

REPORT INFORMATION
  Report Type: Spontaneous
  Country: AU (occurrence: AU)
  Receive Date: 20241002
  Receipt Date: 20241221
  Transmission Date: 20250115
  Serious: Yes (Other)
  Sender: ROCHE
  Company Number: AU-ROCHE-10000089652

PATIENT
  Sex: Male

DRUGS (2)
  1. FARICIMAB [Suspect]
     Active Substance: FARICIMAB
     Indication: Age-related macular degeneration
     Route: 065
     Dates: start: 20240215
  2. AFLIBERCEPT [Concomitant]
     Active Substance: AFLIBERCEPT
     Dates: start: 20231207

REACTIONS (2)
  - Detachment of retinal pigment epithelium [Unknown]
  - Disease progression [Unknown]
